FAERS Safety Report 7086203-9 (Version None)
Quarter: 2010Q4

REPORT INFORMATION
  Report Type: 
  Country: None (occurrence: None)
  Receive Date: 20101105
  Receipt Date: 20101025
  Transmission Date: 20110411
  Serious: Yes (Hospitalization, Other)
  Sender: FDA-Public Use
  Company Number: GB-ELI_LILLY_AND_COMPANY-GB201009004439

PATIENT
  Age: 15 Year
  Sex: Male
  Weight: 47.6 kg

DRUGS (6)
  1. STRATTERA [Suspect]
     Indication: ATTENTION DEFICIT/HYPERACTIVITY DISORDER
     Dosage: 60 MG, DAILY (1/D)
     Dates: end: 20100830
  2. VALPROATE SODIUM [Concomitant]
     Indication: MOOD SWINGS
     Dosage: 150 MG, 2/D
     Route: 048
     Dates: start: 20090825
  3. MONTELUKAST [Concomitant]
     Indication: ASTHMA
     Dosage: 5 MG, UNK
     Route: 048
  4. SALBUTAMOL [Concomitant]
     Indication: ASTHMA
     Dosage: 2 D/F, AS NEEDED
     Route: 055
  5. CLENIL [Concomitant]
     Indication: ASTHMA
     Dosage: 2 D/F, 2/D
     Route: 055
  6. MELATONIN [Concomitant]
     Dosage: 6 MG, EACH EVENING
     Route: 048

REACTIONS (1)
  - PRESYNCOPE [None]
